APPROVED DRUG PRODUCT: BLEPHAMIDE
Active Ingredient: PREDNISOLONE ACETATE; SULFACETAMIDE SODIUM
Strength: 0.2%;10%
Dosage Form/Route: SUSPENSION;OPHTHALMIC
Application: N012813 | Product #002
Applicant: ALLERGAN PHARMACEUTICAL
Approved: Approved Prior to Jan 1, 1982 | RLD: Yes | RS: No | Type: DISCN